FAERS Safety Report 7619169-0 (Version None)
Quarter: 2011Q3

REPORT INFORMATION
  Report Type: 
  Country: None (occurrence: None)
  Receive Date: 20110718
  Receipt Date: 20110704
  Transmission Date: 20111222
  Serious: Yes (Other)
  Sender: FDA-Public Use
  Company Number: PHHY2011DE06619

PATIENT
  Sex: Female

DRUGS (1)
  1. ZOLEDRONOC ACID [Suspect]
     Indication: OSTEOPOROSIS
     Dosage: 5 MG, ONCE YEARLY
     Route: 042
     Dates: start: 20070101

REACTIONS (6)
  - JAW DISORDER [None]
  - BONE SWELLING [None]
  - OSTEONECROSIS OF JAW [None]
  - OSTEOMYELITIS [None]
  - ERYTHEMA [None]
  - LYMPH NODE PAIN [None]
